FAERS Safety Report 5546161-2 (Version None)
Quarter: 2007Q4

REPORT INFORMATION
  Report Type: 
  Country: None (occurrence: None)
  Receive Date: 20071211
  Receipt Date: 20071128
  Transmission Date: 20080405
  Serious: Yes (Other)
  Sender: FDA-Public Use
  Company Number: US-BAYER-200714782NA

PATIENT
  Sex: Female

DRUGS (1)
  1. MIRENA [Suspect]
     Route: 015
     Dates: start: 20070628, end: 20070919

REACTIONS (4)
  - AUTOIMMUNE DISORDER [None]
  - FACIAL SPASM [None]
  - INFLUENZA LIKE ILLNESS [None]
  - PAIN [None]
